FAERS Safety Report 7693602-0 (Version None)
Quarter: 2011Q3

REPORT INFORMATION
  Report Type: 
  Country: None (occurrence: None)
  Receive Date: 20110819
  Receipt Date: 20110816
  Transmission Date: 20111222
  Serious: Yes (Death)
  Sender: FDA-Public Use
  Company Number: PHEH2011US01824

PATIENT
  Sex: Male

DRUGS (3)
  1. ATENOLOL [Concomitant]
  2. TOBI [Suspect]
     Indication: BRONCHIECTASIS
     Dosage: 300 MG, BID
     Dates: start: 20110510
  3. SIMVASTATIN [Concomitant]

REACTIONS (1)
  - DEATH [None]
